FAERS Safety Report 4483599-9 (Version None)
Quarter: 2004Q4

REPORT INFORMATION
  Report Type: 
  Country: None (occurrence: None)
  Receive Date: 20041021
  Receipt Date: 20041013
  Transmission Date: 20050328
  Serious: Yes (Other)
  Sender: FDA-Public Use
  Company Number: 163-20785-04060627

PATIENT
  Age: 62 Year
  Sex: Female

DRUGS (9)
  1. THALOMID [Suspect]
     Indication: METASTASES TO BONE
     Dosage: SEE IMAGE
     Route: 048
     Dates: start: 20040422, end: 20040606
  2. THALOMID [Suspect]
     Indication: METASTASES TO LUNG
     Dosage: SEE IMAGE
     Route: 048
     Dates: start: 20040422, end: 20040606
  3. THALOMID [Suspect]
     Indication: UTERINE LEIOMYOSARCOMA
     Dosage: SEE IMAGE
     Route: 048
     Dates: start: 20040422, end: 20040606
  4. THALOMID [Suspect]
     Indication: METASTASES TO BONE
     Dosage: SEE IMAGE
     Route: 048
     Dates: start: 20040607, end: 20040622
  5. THALOMID [Suspect]
     Indication: METASTASES TO LUNG
     Dosage: SEE IMAGE
     Route: 048
     Dates: start: 20040607, end: 20040622
  6. THALOMID [Suspect]
     Indication: UTERINE LEIOMYOSARCOMA
     Dosage: SEE IMAGE
     Route: 048
     Dates: start: 20040607, end: 20040622
  7. THALOMID [Suspect]
     Indication: METASTASES TO BONE
     Dosage: SEE IMAGE
     Route: 048
     Dates: start: 20040623
  8. THALOMID [Suspect]
     Indication: METASTASES TO LUNG
     Dosage: SEE IMAGE
     Route: 048
     Dates: start: 20040623
  9. THALOMID [Suspect]
     Indication: UTERINE LEIOMYOSARCOMA
     Dosage: SEE IMAGE
     Route: 048
     Dates: start: 20040623

REACTIONS (4)
  - CATARACT [None]
  - FATIGUE [None]
  - NEUROPATHY [None]
  - VISION BLURRED [None]
